FAERS Safety Report 6139829-0 (Version None)
Quarter: 2009Q2

REPORT INFORMATION
  Report Type: 
  Country: None (occurrence: None)
  Receive Date: 20090401
  Receipt Date: 20090319
  Transmission Date: 20091009
  Serious: Yes (Hospitalization)
  Sender: FDA-Public Use
  Company Number: ID-AVENTIS-200912763GDDC

PATIENT
  Age: 57 Year
  Sex: Female

DRUGS (5)
  1. APIDRA [Suspect]
     Indication: TYPE 2 DIABETES MELLITUS
     Route: 058
     Dates: start: 20090209, end: 20090215
  2. APIDRA [Suspect]
     Route: 058
     Dates: start: 20090216, end: 20090226
  3. METFORMIN HCL [Concomitant]
     Indication: TYPE 2 DIABETES MELLITUS
     Route: 048
     Dates: start: 20070101, end: 20090226
  4. AMARYL [Concomitant]
     Indication: TYPE 2 DIABETES MELLITUS
     Route: 048
     Dates: start: 20070101, end: 20090226
  5. CAPTOPRIL [Concomitant]
     Indication: HYPERTENSION
     Dosage: DOSE: UNK
     Route: 048
     Dates: end: 20090226

REACTIONS (1)
  - TOXIC EPIDERMAL NECROLYSIS [None]
